FAERS Safety Report 25192508 (Version 3)
Quarter: 2025Q2

REPORT INFORMATION
  Report Type: Spontaneous
  Country: FR (occurrence: FR)
  Receive Date: 20250414
  Receipt Date: 20250506
  Transmission Date: 20250717
  Serious: Yes (Other)
  Sender: NOVARTIS
  Company Number: None

PATIENT
  Age: 65 Year
  Sex: Female
  Weight: 53 kg

DRUGS (4)
  1. SCEMBLIX [Suspect]
     Active Substance: ASCIMINIB HYDROCHLORIDE
     Indication: Chronic myeloid leukaemia
     Dosage: 80 MG, QD
     Route: 048
     Dates: start: 20240821, end: 20240926
  2. SCEMBLIX [Suspect]
     Active Substance: ASCIMINIB HYDROCHLORIDE
     Dosage: 40 MG, QD
     Route: 048
     Dates: start: 20241003, end: 20241226
  3. SCEMBLIX [Suspect]
     Active Substance: ASCIMINIB HYDROCHLORIDE
     Dosage: 20 MG, QD
     Route: 048
     Dates: start: 20241230
  4. EZETIMIBE [Concomitant]
     Active Substance: EZETIMIBE
     Indication: Hypercholesterolaemia
     Dosage: 10 MG, QD
     Route: 048
     Dates: start: 20240821

REACTIONS (2)
  - Sarcoidosis [Recovering/Resolving]
  - Lipase increased [Recovered/Resolved]

NARRATIVE: CASE EVENT DATE: 20240918
